FAERS Safety Report 12586111 (Version 1)
Quarter: 2016Q3

REPORT INFORMATION
  Report Type: Spontaneous
  Country: US (occurrence: None)
  Receive Date: 20160722
  Receipt Date: 20160722
  Transmission Date: 20161109
  Serious: Yes (Other)
  Sender: FDA-Public Use
  Company Number: None

PATIENT
  Age: 41 Year
  Sex: Female

DRUGS (9)
  1. VIIBRYD [Concomitant]
     Active Substance: VILAZODONE HYDROCHLORIDE
  2. COQ10 [Concomitant]
     Active Substance: UBIDECARENONE
  3. METOPROLOL. [Concomitant]
     Active Substance: METOPROLOL
  4. DHEA [Concomitant]
     Active Substance: PRASTERONE
  5. ZYRTEC [Suspect]
     Active Substance: CETIRIZINE HYDROCHLORIDE
     Indication: DERMATITIS CONTACT
     Route: 048
  6. SYNTHROID [Concomitant]
     Active Substance: LEVOTHYROXINE SODIUM
  7. SIMVISTATIN [Concomitant]
     Active Substance: SIMVASTATIN
  8. OMEPRAZOL [Concomitant]
     Active Substance: OMEPRAZOLE
  9. FLUTICASON [Concomitant]
     Active Substance: FLUTICASONE\FLUTICASONE PROPIONATE

REACTIONS (3)
  - Neuropathy peripheral [None]
  - Pruritus [None]
  - Product label issue [None]

NARRATIVE: CASE EVENT DATE: 20010901
